FAERS Safety Report 24629921 (Version 1)
Quarter: 2024Q4

REPORT INFORMATION
  Report Type: Spontaneous
  Country: US (occurrence: US)
  Receive Date: 20241118
  Receipt Date: 20241118
  Transmission Date: 20250115
  Serious: No
  Sender: ABBVIE
  Company Number: US-ABBVIE-6000800

PATIENT

DRUGS (2)
  1. BIMATOPROST [Suspect]
     Active Substance: BIMATOPROST
     Indication: Product used for unknown indication
     Dosage: TIME INTERVAL: AS NECESSARY
     Route: 050
  2. BIMATOPROST [Suspect]
     Active Substance: BIMATOPROST
     Dosage: TIME INTERVAL: AS NECESSARY
     Route: 050

REACTIONS (1)
  - Iritis [Unknown]
